FAERS Safety Report 12176263 (Version 2)
Quarter: 2016Q2

REPORT INFORMATION
  Report Type: Spontaneous
  Country: JP (occurrence: JP)
  Receive Date: 20160315
  Receipt Date: 20160401
  Transmission Date: 20160815
  Serious: Yes (Hospitalization, Other)
  Sender: FDA-Public Use
  Company Number: JP-JNJFOC-20160309733

PATIENT
  Age: 7 Year
  Sex: Female
  Weight: 28 kg

DRUGS (7)
  1. NAUZELIN [Suspect]
     Active Substance: DOMPERIDONE
     Indication: VOMITING
     Route: 048
     Dates: start: 201602, end: 201602
  2. NAUZELIN [Suspect]
     Active Substance: DOMPERIDONE
     Indication: ABDOMINAL PAIN
     Route: 048
     Dates: start: 201602, end: 201602
  3. ZYRTEC [Suspect]
     Active Substance: CETIRIZINE HYDROCHLORIDE
     Indication: RHINORRHOEA
     Dosage: STRENGTH - 1.25 %, 0.8 G, ONCE DAILY (QD), DRY SYRUP
     Route: 048
     Dates: start: 20160223, end: 20160225
  4. AMOXICILLIN. [Concomitant]
     Active Substance: AMOXICILLIN
     Indication: VOMITING
     Route: 048
     Dates: start: 201602, end: 20160226
  5. AMOXICILLIN. [Concomitant]
     Active Substance: AMOXICILLIN
     Indication: ABDOMINAL PAIN
     Route: 048
     Dates: start: 201602, end: 20160226
  6. ZYRTEC [Suspect]
     Active Substance: CETIRIZINE HYDROCHLORIDE
     Indication: VOMITING
     Dosage: STRENGTH - 1.25 %, 0.8 G, ONCE DAILY (QD), DRY SYRUP
     Route: 048
     Dates: start: 20160223, end: 20160225
  7. ZYRTEC [Suspect]
     Active Substance: CETIRIZINE HYDROCHLORIDE
     Indication: ABDOMINAL PAIN
     Dosage: STRENGTH - 1.25 %, 0.8 G, ONCE DAILY (QD), DRY SYRUP
     Route: 048
     Dates: start: 20160223, end: 20160225

REACTIONS (4)
  - Altered state of consciousness [Recovered/Resolved]
  - Product use issue [Recovered/Resolved]
  - Muscle rigidity [Recovered/Resolved]
  - Off label use [Recovered/Resolved]

NARRATIVE: CASE EVENT DATE: 20160225
